FAERS Safety Report 5023086-2 (Version None)
Quarter: 2006Q2

REPORT INFORMATION
  Report Type: 
  Country: None (occurrence: None)
  Receive Date: 20060605
  Receipt Date: 20060526
  Transmission Date: 20061013
  Serious: Yes (Other)
  Sender: FDA-Public Use
  Company Number: 2006-05-1998

PATIENT
  Age: 48 Year
  Sex: Female

DRUGS (1)
  1. INTRON A [Suspect]
     Indication: METASTATIC MALIGNANT MELANOMA
     Dosage: 5-8 MIU TIW* SUBCUTANEOUS
     Route: 058

REACTIONS (7)
  - BLINDNESS UNILATERAL [None]
  - CHOROIDAL NEOVASCULARISATION [None]
  - EYE DISORDER [None]
  - FIBROSIS [None]
  - PAPILLOEDEMA [None]
  - RETINAL DETACHMENT [None]
  - RETINAL HAEMORRHAGE [None]
